FAERS Safety Report 4501865-5 (Version None)
Quarter: 2004Q4

REPORT INFORMATION
  Report Type: 
  Country: None (occurrence: None)
  Receive Date: 20041116
  Receipt Date: 20041108
  Transmission Date: 20050328
  Serious: Yes (Death)
  Sender: FDA-Public Use
  Company Number: US-JNJFOC-20040908661

PATIENT
  Sex: Male
  Weight: 97.07 kg

DRUGS (3)
  1. TOPAMAX [Suspect]
     Indication: EPILEPSY
     Route: 049
  2. DEPAKOTE [Concomitant]
     Route: 049
  3. RISPERDAL [Concomitant]
     Route: 049

REACTIONS (1)
  - SUDDEN DEATH [None]
